FAERS Safety Report 9661793 (Version 2)
Quarter: 2013Q4

REPORT INFORMATION
  Report Type: Spontaneous
  Country: US (occurrence: US)
  Receive Date: 20131031
  Receipt Date: 20131031
  Transmission Date: 20140711
  Serious: No
  Sender: FDA-Public Use
  Company Number: US-PURDUE-USA-2011-0064130

PATIENT
  Sex: Female
  Weight: 75.74 kg

DRUGS (2)
  1. OXYCONTIN (NDA 22-272) [Suspect]
     Indication: PAIN
     Dosage: 10 MG, BID PRN
     Dates: start: 20101122, end: 20110217
  2. OXYCONTIN (NDA 22-272) [Suspect]
     Indication: HEADACHE

REACTIONS (2)
  - Throat tightness [Not Recovered/Not Resolved]
  - Pruritus [Not Recovered/Not Resolved]
